FAERS Safety Report 8521560-5 (Version None)
Quarter: 2012Q3

REPORT INFORMATION
  Report Type: 
  Country: None (occurrence: None)
  Receive Date: 20120719
  Receipt Date: 20120712
  Transmission Date: 20120928
  Serious: Yes (Other)
  Sender: FDA-Public Use
  Company Number: CA-BAYER-2012-062502

PATIENT
  Sex: Female

DRUGS (2)
  1. BETASERON [Suspect]
     Indication: RELAPSING-REMITTING MULTIPLE SCLEROSIS
     Dosage: 8 MIU, QOD
     Route: 058
     Dates: end: 20120501
  2. EXTAVIA [Suspect]
     Indication: RELAPSING-REMITTING MULTIPLE SCLEROSIS
     Dosage: 8 MIU, QOD
     Route: 058
     Dates: start: 20120514

REACTIONS (9)
  - ARTHRITIS [None]
  - MEMORY IMPAIRMENT [None]
  - GAIT DISTURBANCE [None]
  - CONTUSION [None]
  - ARTHRALGIA [None]
  - RETINAL DETACHMENT [None]
  - EYE DISORDER [None]
  - FOOT FRACTURE [None]
  - FALL [None]
